FAERS Safety Report 15755143 (Version 2)
Quarter: 2018Q4

REPORT INFORMATION
  Report Type: Spontaneous
  Country: GB (occurrence: GB)
  Receive Date: 20181224
  Receipt Date: 20181227
  Transmission Date: 20190205
  Serious: Yes (Hospitalization, Other)
  Sender: FDA-Public Use
  Company Number: GB-BRISTOL-MYERS SQUIBB COMPANY-BMS-2018-118262

PATIENT
  Age: 55 Year
  Sex: Female

DRUGS (1)
  1. TRIAMCINOLONE ACETONIDE. [Suspect]
     Active Substance: TRIAMCINOLONE ACETONIDE
     Indication: MACULAR OEDEMA
     Dosage: UNK
     Route: 047
     Dates: start: 20181120, end: 20181120

REACTIONS (2)
  - Product use issue [Unknown]
  - Blindness [Recovering/Resolving]

NARRATIVE: CASE EVENT DATE: 20181120
